FAERS Safety Report 9997986 (Version 1)
Quarter: 2014Q1

REPORT INFORMATION
  Report Type: Spontaneous
  Country: US (occurrence: None)
  Receive Date: 20140304
  Receipt Date: 20140304
  Transmission Date: 20141002
  Serious: Yes (Other)
  Sender: FDA-Public Use
  Company Number: RB-61624-2013

PATIENT
  Sex: Male

DRUGS (2)
  1. SUBOXONE 8 MG [Suspect]
     Indication: DRUG DEPENDENCE
     Dosage: SUBOXONE FILM, TRANSMAMMARY
     Route: 064
     Dates: start: 2012, end: 201212
  2. SUBUTEX 8 MG [Suspect]
     Indication: DRUG DEPENDENCE
     Route: 064
     Dates: start: 201212, end: 20130731

REACTIONS (4)
  - Foetal exposure during pregnancy [None]
  - Exposure during breast feeding [None]
  - Convulsion neonatal [None]
  - Muscle twitching [None]
